FAERS Safety Report 15386194 (Version 1)
Quarter: 2018Q3

REPORT INFORMATION
  Report Type: Spontaneous
  Country: US (occurrence: US)
  Receive Date: 20180914
  Receipt Date: 20180914
  Transmission Date: 20181010
  Serious: Yes (Other)
  Sender: FDA-Public Use
  Company Number: US-FRESENIUS KABI-FK201809609

PATIENT
  Age: 68 Year
  Sex: Male

DRUGS (6)
  1. CYCLOPHOSPHAMIDE. [Suspect]
     Active Substance: CYCLOPHOSPHAMIDE
     Indication: EPSTEIN-BARR VIRUS ASSOCIATED LYMPHOMA
     Route: 065
  2. VINCRISTINE [Suspect]
     Active Substance: VINCRISTINE
     Indication: EPSTEIN-BARR VIRUS ASSOCIATED LYMPHOMA
     Route: 065
  3. RITUXIMAB. [Suspect]
     Active Substance: RITUXIMAB
     Indication: EPSTEIN-BARR VIRUS ASSOCIATED LYMPHOMA
     Route: 065
  4. DOXORUBICIN (MANUFACTURER UNKNOWN) [Suspect]
     Active Substance: DOXORUBICIN
     Indication: EPSTEIN-BARR VIRUS ASSOCIATED LYMPHOMA
     Route: 065
  5. ETOPOSIDE (MANUFACTURER UNKNOWN) [Suspect]
     Active Substance: ETOPOSIDE
     Indication: EPSTEIN-BARR VIRUS ASSOCIATED LYMPHOMA
     Route: 065
  6. PREDNISONE. [Suspect]
     Active Substance: PREDNISONE
     Indication: EPSTEIN-BARR VIRUS ASSOCIATED LYMPHOMA
     Route: 065

REACTIONS (1)
  - B-cell type acute leukaemia [Recovered/Resolved]
